FAERS Safety Report 4571589-7 (Version None)
Quarter: 2005Q1

REPORT INFORMATION
  Report Type: 
  Country: None (occurrence: None)
  Receive Date: 20050203
  Receipt Date: 20050203
  Transmission Date: 20050727
  Serious: Yes (Other)
  Sender: FDA-Public Use
  Company Number: None

PATIENT
  Sex: Female

DRUGS (1)
  1. COUMADIN [Suspect]
     Indication: ATRIAL FIBRILLATION
     Dosage: 5 MG ONE DAILY AS DIRECT [LIFETIME]
     Dates: start: 20010101

REACTIONS (2)
  - DRUG EFFECT INCREASED [None]
  - INTERNATIONAL NORMALISED RATIO INCREASED [None]
